FAERS Safety Report 19020870 (Version 1)
Quarter: 2021Q1

REPORT INFORMATION
  Report Type: Report from Study
  Country: GB (occurrence: GB)
  Receive Date: 20210317
  Receipt Date: 20210317
  Transmission Date: 20210420
  Serious: Yes (Hospitalization, Other)
  Sender: FDA-Public Use
  Company Number: GB-BAYER-2021-102378

PATIENT
  Age: 20 Year
  Sex: Male

DRUGS (5)
  1. PLATELETS [Concomitant]
     Active Substance: HUMAN PLATELET, ALLOGENIC
     Indication: TRANSFUSION
     Dosage: UNK
     Route: 065
     Dates: start: 20191105
  2. HEPARIN [Concomitant]
     Active Substance: HEPARIN SODIUM
     Indication: ANTICOAGULANT THERAPY
     Dosage: 65 KILO INTERNATIONAL UNIT
     Route: 065
     Dates: start: 20191105, end: 20191105
  3. FRESH FROZEN PLASMA [Concomitant]
     Active Substance: HUMAN PLASMA
     Indication: TRANSFUSION
     Dosage: UNK
     Route: 065
     Dates: start: 20191105
  4. APROTININ [Suspect]
     Active Substance: APROTININ
     Indication: MITRAL VALVE REPLACEMENT
     Dosage: 100 MILILITRE TOTAL LOADING DOSE
     Route: 065
     Dates: start: 20191105, end: 20191105
  5. RED BLOOD CELLS [Concomitant]
     Active Substance: HUMAN RED BLOOD CELL
     Indication: TRANSFUSION
     Dosage: UNK
     Route: 065
     Dates: start: 20191105

REACTIONS (5)
  - Off label use [Unknown]
  - Renal impairment [Recovered/Resolved]
  - Pulmonary embolism [Not Recovered/Not Resolved]
  - Product administration error [Unknown]
  - Product use in unapproved indication [Unknown]

NARRATIVE: CASE EVENT DATE: 20191105
